FAERS Safety Report 8959537 (Version 1)
Quarter: 2012Q4

REPORT INFORMATION
  Report Type: 
  Country: US (occurrence: US)
  Receive Date: 20121212
  Receipt Date: 20121212
  Transmission Date: 20130627
  Serious: Yes (Other)
  Sender: FDA-Public Use
  Company Number: US-BAYER-2012-127651

PATIENT
  Sex: Male

DRUGS (1)
  1. ADALAT CC [Suspect]
     Indication: BLOOD PRESSURE HIGH
     Dosage: 30 mg, BID
     Route: 048
     Dates: start: 201208

REACTIONS (4)
  - Mouth haemorrhage [None]
  - Rash [None]
  - Dysphagia [None]
  - Speech disorder [None]
